FAERS Safety Report 9670287 (Version 1)
Quarter: 2013Q4

REPORT INFORMATION
  Report Type: Spontaneous
  Country: CA (occurrence: CA)
  Receive Date: 20131105
  Receipt Date: 20131105
  Transmission Date: 20140711
  Serious: Yes (Death, Other)
  Sender: FDA-Public Use
  Company Number: CA-BAXTER-2013BAX042737

PATIENT
  Age: 65 Year
  Sex: Male

DRUGS (1)
  1. ADVATE ANTIHEMOPHILIC FACTOR (RECOMBINANT)PLASMA /ALBUMIN FREE METHOD [Suspect]
     Indication: PRODUCT USED FOR UNKNOWN INDICATION
     Route: 065

REACTIONS (4)
  - Death [Fatal]
  - Haemophilia [Unknown]
  - HIV infection [Unknown]
  - Hepatitis C [Unknown]
